FAERS Safety Report 18105086 (Version 1)
Quarter: 2020Q3

REPORT INFORMATION
  Report Type: Spontaneous
  Country: CA (occurrence: CA)
  Receive Date: 20200803
  Receipt Date: 20200803
  Transmission Date: 20201103
  Serious: Yes (Other)
  Sender: FDA-Public Use
  Company Number: CA-TEVA-2020-CA-1808599

PATIENT
  Age: 57 Year
  Sex: Female

DRUGS (3)
  1. ADALIMUMAB [Concomitant]
     Active Substance: ADALIMUMAB
     Route: 058
  2. APO?LEFLUNOMIDE [Suspect]
     Active Substance: LEFLUNOMIDE
     Indication: PRODUCT USED FOR UNKNOWN INDICATION
     Route: 048
  3. METHOTREXATE. [Suspect]
     Active Substance: METHOTREXATE
     Indication: RHEUMATOID ARTHRITIS
     Route: 058

REACTIONS (11)
  - Nausea [Unknown]
  - Gastrointestinal haemorrhage [Unknown]
  - Substance-induced psychotic disorder [Unknown]
  - Drug intolerance [Unknown]
  - Influenza like illness [Unknown]
  - Drug ineffective [Unknown]
  - Headache [Unknown]
  - Malaise [Unknown]
  - Vomiting [Unknown]
  - Drug hypersensitivity [Unknown]
  - Hepatic enzyme increased [Unknown]
